FAERS Safety Report 4832713-1 (Version None)
Quarter: 2005Q4

REPORT INFORMATION
  Report Type: 
  Country: None (occurrence: None)
  Receive Date: 20051117
  Receipt Date: 20051107
  Transmission Date: 20060501
  Serious: Yes (Hospitalization)
  Sender: FDA-Public Use
  Company Number: US_0511123483

PATIENT
  Age: 70 Year
  Sex: Female
  Weight: 38 kg

DRUGS (5)
  1. TERIPARATIDE [Suspect]
     Indication: OSTEOPOROSIS
     Dates: start: 20040621, end: 20050127
  2. ATENOLOL [Concomitant]
  3. ASPIRIN [Concomitant]
  4. LIPITOR [Concomitant]
  5. PLENDIL [Concomitant]

REACTIONS (5)
  - BONE LESION [None]
  - DIVERTICULITIS [None]
  - GASTRITIS [None]
  - IMPAIRED GASTRIC EMPTYING [None]
  - WEIGHT DECREASED [None]
